FAERS Safety Report 4694432-4 (Version None)
Quarter: 2005Q2

REPORT INFORMATION
  Report Type: 
  Country: None (occurrence: None)
  Receive Date: 20050620
  Receipt Date: 20050609
  Transmission Date: 20051028
  Serious: Yes (Other)
  Sender: FDA-Public Use
  Company Number: US-JNJFOC-20050602907

PATIENT
  Age: 50 Year
  Sex: Female
  Weight: 73.03 kg

DRUGS (6)
  1. DURAGESIC-100 [Suspect]
     Route: 062
     Dates: start: 20050101, end: 20050101
  2. DURAGESIC-100 [Suspect]
     Route: 062
     Dates: start: 20050101, end: 20050101
  3. DURAGESIC-100 [Suspect]
     Route: 062
     Dates: start: 20050101, end: 20050101
  4. XANAX [Concomitant]
     Indication: TREMOR
  5. ZANAFLEX [Concomitant]
  6. MONOPRIL [Concomitant]

REACTIONS (7)
  - ANOREXIA [None]
  - CHILLS [None]
  - CONFUSIONAL STATE [None]
  - DRUG INEFFECTIVE [None]
  - INSOMNIA [None]
  - MULTIPLE SCLEROSIS [None]
  - RHINORRHOEA [None]
